FAERS Safety Report 4300156-5 (Version None)
Quarter: 2004Q1

REPORT INFORMATION
  Report Type: 
  Country: None (occurrence: None)
  Receive Date: 20040218
  Receipt Date: 20040202
  Transmission Date: 20041129
  Serious: Yes (Hospitalization)
  Sender: FDA-Public Use
  Company Number: DSA_23977_2004

PATIENT
  Age: 76 Year
  Sex: Female

DRUGS (5)
  1. DILTIAZEM [Suspect]
     Indication: HYPERTENSION
     Dosage: 300 MG Q DAY PO
     Route: 048
     Dates: start: 19830101, end: 20031126
  2. APROVEL [Suspect]
     Indication: HYPERTENSION
     Dates: start: 20000101, end: 20031113
  3. INDAPAMIDE [Suspect]
     Indication: HYPERTENSION
     Dates: start: 20021015, end: 20031113
  4. ZYRTEC [Suspect]
     Dosage: 10 MG Q DAY PO
     Route: 048
     Dates: start: 20020915, end: 20031119
  5. SERETIDE [Concomitant]

REACTIONS (2)
  - CULTURE URINE POSITIVE [None]
  - LEUKOCYTOCLASTIC VASCULITIS [None]
